FAERS Safety Report 9705887 (Version 1)
Quarter: 2013Q4

REPORT INFORMATION
  Report Type: Spontaneous
  Country: US (occurrence: US)
  Receive Date: 20131122
  Receipt Date: 20131122
  Transmission Date: 20140711
  Serious: No
  Sender: FDA-Public Use
  Company Number: US-GALDERMA-US13002916

PATIENT
  Age: 39 Year
  Sex: Female
  Weight: 64 kg

DRUGS (4)
  1. CLOBEX (CLOBETASOL PROPIONATE) SPRAY, 0.05% [Suspect]
     Indication: PSORIASIS
     Route: 061
     Dates: start: 201304, end: 20130913
  2. CLOBEX (CLOBETASOL PROPIONATE) SHAMPOO, 0.05% [Suspect]
     Indication: PSORIASIS
     Route: 061
     Dates: start: 201304, end: 20130913
  3. PANTENE SHAMPOO [Concomitant]
     Indication: THERAPEUTIC SKIN CARE TOPICAL
     Route: 061
  4. TFAL SHAMPOO [Concomitant]
     Indication: PSORIASIS
     Route: 061
     Dates: start: 201304

REACTIONS (2)
  - Alopecia [Not Recovered/Not Resolved]
  - Incorrect drug administration duration [Recovered/Resolved]
